FAERS Safety Report 9345109 (Version 3)
Quarter: 2014Q2

REPORT INFORMATION
  Report Type: Spontaneous
  Country: US (occurrence: US)
  Receive Date: 20130612
  Receipt Date: 20140502
  Transmission Date: 20141212
  Serious: Yes (Hospitalization)
  Sender: FDA-Public Use
  Company Number: US-B.I. PHARMACEUTICALS,INC./RIDGEFIELD-2013-BI-16282BP

PATIENT
  Sex: Female
  Weight: 79.38 kg

DRUGS (14)
  1. PRADAXA [Suspect]
     Indication: CEREBROVASCULAR ACCIDENT PROPHYLAXIS
     Route: 065
     Dates: start: 20111018, end: 20120511
  2. PRADAXA [Suspect]
     Indication: THROMBOSIS PROPHYLAXIS
  3. ATENOLOL [Concomitant]
     Route: 065
  4. FENOFIBRATE [Concomitant]
     Route: 065
  5. BENAZEPRIL [Concomitant]
     Route: 065
  6. NAPROXEN SODIUM [Concomitant]
     Route: 065
  7. JANUMET [Concomitant]
     Route: 065
  8. LOVAZA [Concomitant]
     Route: 065
  9. ZETIA [Concomitant]
     Route: 065
  10. TIKOSYN [Concomitant]
     Route: 065
  11. OXYBUTYNIN [Concomitant]
     Route: 065
  12. AMLODIPINE [Concomitant]
     Route: 065
  13. NEXIUM [Concomitant]
     Route: 065
  14. ASPIRIN [Concomitant]
     Route: 065

REACTIONS (2)
  - Haematuria [Unknown]
  - Gastrointestinal haemorrhage [Unknown]
